FAERS Safety Report 17117665 (Version 1)
Quarter: 2019Q4

REPORT INFORMATION
  Report Type: Spontaneous
  Country: NL (occurrence: NL)
  Receive Date: 20191205
  Receipt Date: 20191205
  Transmission Date: 20200122
  Serious: Yes (Death, Other)
  Sender: FDA-Public Use
  Company Number: NL-MYLANLABS-2019M1119230

PATIENT
  Age: 93 Year
  Sex: Female

DRUGS (4)
  1. FUROSEMIDE. [Suspect]
     Active Substance: FUROSEMIDE
     Indication: PRODUCT USED FOR UNKNOWN INDICATION
     Dosage: UNK
     Route: 065
  2. PREDNISONE. [Suspect]
     Active Substance: PREDNISONE
     Indication: PRODUCT USED FOR UNKNOWN INDICATION
     Dosage: 20 MG, UNK
     Route: 065
  3. SODIUM CHLORIDE. [Suspect]
     Active Substance: SODIUM CHLORIDE
     Indication: PRODUCT USED FOR UNKNOWN INDICATION
     Dosage: 9 MILLIGRAM PER MILLILITRE
     Route: 065
  4. AMOXICILLIN. [Suspect]
     Active Substance: AMOXICILLIN
     Indication: PRODUCT USED FOR UNKNOWN INDICATION
     Dosage: 500 MG, UNK
     Route: 065

REACTIONS (14)
  - Nasopharyngitis [Unknown]
  - Wheezing [Unknown]
  - Oedema [Unknown]
  - Hypersomnia [Unknown]
  - Upper respiratory tract infection [Unknown]
  - Confusional state [Unknown]
  - Hallucination [Unknown]
  - Pyrexia [Unknown]
  - Weight decreased [Unknown]
  - Productive cough [Unknown]
  - Cough [Unknown]
  - Depressed mood [Fatal]
  - Fluid intake reduced [Unknown]
  - Dyspnoea [Unknown]
